FAERS Safety Report 4665657-9 (Version None)
Quarter: 2005Q2

REPORT INFORMATION
  Report Type: 
  Country: None (occurrence: None)
  Receive Date: 20050519
  Receipt Date: 20040921
  Transmission Date: 20051028
  Serious: Yes (Death, Hospitalization)
  Sender: FDA-Public Use
  Company Number: SE-BRISTOL-MYERS SQUIBB COMPANY-12906830

PATIENT
  Age: 54 Year
  Sex: Female

DRUGS (10)
  1. VIDEX [Suspect]
     Indication: HIV INFECTION
     Route: 048
     Dates: start: 20031001
  2. REYATAZ [Suspect]
     Indication: HIV INFECTION
     Route: 048
     Dates: start: 20031001
  3. INTERFERON [Suspect]
     Dates: start: 20031001, end: 20031101
  4. NORVIR [Concomitant]
     Indication: HIV INFECTION
     Dates: start: 20031001
  5. EPIVIR [Concomitant]
     Indication: HIV INFECTION
     Dates: start: 20031001
  6. PEG-INTRON [Concomitant]
     Dosage: 0.4 ML OF 50 MCG STRENGTH
  7. REMERON [Concomitant]
  8. LACTULOSE [Concomitant]
  9. SPIRONOLACTONE [Concomitant]
  10. INDERAL [Concomitant]

REACTIONS (5)
  - CARDIAC ARREST [None]
  - DEPRESSED MOOD [None]
  - FATIGUE [None]
  - FLUID RETENTION [None]
  - NERVOUS SYSTEM DISORDER [None]
